FAERS Safety Report 12459478 (Version 6)
Quarter: 2016Q4

REPORT INFORMATION
  Report Type: Spontaneous
  Country: US (occurrence: US)
  Receive Date: 20160613
  Receipt Date: 20161026
  Transmission Date: 20170207
  Serious: No
  Sender: FDA-Public Use
  Company Number: US-GLAXOSMITHKLINE-US2016078745

PATIENT
  Sex: Male

DRUGS (3)
  1. VERAMYST [Suspect]
     Active Substance: FLUTICASONE FUROATE
     Indication: PRODUCT USED FOR UNKNOWN INDICATION
     Dosage: UNK, BID
     Route: 045
  2. VERAMYST [Suspect]
     Active Substance: FLUTICASONE FUROATE
     Dosage: 2 SPRAYS EACH NOSTRIL BID
  3. VERAMYST [Suspect]
     Active Substance: FLUTICASONE FUROATE
     Dosage: 2 SPRAYS EACH NOSTRIL QD

REACTIONS (7)
  - Product quality issue [Unknown]
  - Device use error [Unknown]
  - Off label use [Unknown]
  - Drug prescribing error [Unknown]
  - Prescribed overdose [Unknown]
  - Drug dose omission [Unknown]
  - Incorrect dose administered [Unknown]
